FAERS Safety Report 9249092 (Version 3)
Quarter: 2013Q2

REPORT INFORMATION
  Report Type: Spontaneous
  Country: FR (occurrence: FR)
  Receive Date: 20130423
  Receipt Date: 20130619
  Transmission Date: 20140414
  Serious: Yes (Death)
  Sender: FDA-Public Use
  Company Number: FR-ELI_LILLY_AND_COMPANY-FR201304004358

PATIENT
  Age: 1 Hour
  Sex: Female

DRUGS (2)
  1. ZYPREXA [Suspect]
     Indication: SCHIZOPHRENIA
     Dosage: 10 MG, QD
     Route: 064
  2. FOLIC ACID [Concomitant]
     Route: 064

REACTIONS (2)
  - Rhesus incompatibility [Fatal]
  - Foetal exposure during pregnancy [Unknown]
